FAERS Safety Report 24970480 (Version 2)
Quarter: 2025Q1

REPORT INFORMATION
  Report Type: Report from Study
  Country: PT (occurrence: PT)
  Receive Date: 20250214
  Receipt Date: 20250328
  Transmission Date: 20250408
  Serious: Yes (Other)
  Sender: VIIV
  Company Number: None

PATIENT

DRUGS (2)
  1. CABOTEGRAVIR [Suspect]
     Active Substance: CABOTEGRAVIR
     Indication: HIV infection
     Dosage: 200 MG, Q4W (INJECTABLE ART WAS GIVEN ON A SCHEDULE OF WEEK 0, WEEK 4, AND THEN EVERY 8 WEEKS)
     Route: 030
     Dates: start: 20241119, end: 20241119
  2. RILPIVIRINE [Suspect]
     Active Substance: RILPIVIRINE
     Indication: HIV infection
     Dosage: 900 MG, Q4W (INJECTABLE ART WAS DONE ON A SCHEDULE OF WEEK 0, WEEK 4, AND EVERY 8 WEEKS THEREAFTER)
     Route: 030
     Dates: start: 20241119, end: 20241119

REACTIONS (14)
  - Injection site pain [Recovered/Resolved]
  - Injection site discomfort [Recovered/Resolved]
  - Headache [Recovered/Resolved]
  - Abdominal discomfort [Recovered/Resolved]
  - Myalgia [Recovered/Resolved]
  - Abdominal pain [Recovered/Resolved]
  - Fatigue [Recovered/Resolved]
  - Induration [Recovered/Resolved]
  - Injection site oedema [Recovered/Resolved]
  - Feeling hot [Recovered/Resolved]
  - Malaise [Recovered/Resolved]
  - Dry mouth [Recovered/Resolved]
  - Anxiety [Recovered/Resolved]
  - Pyrexia [Recovered/Resolved]

NARRATIVE: CASE EVENT DATE: 20241121
